FAERS Safety Report 6028505-0 (Version None)
Quarter: 2008Q4

REPORT INFORMATION
  Report Type: 
  Country: None (occurrence: None)
  Receive Date: 20081231
  Receipt Date: 20081231
  Transmission Date: 20090506
  Serious: Yes (Other)
  Sender: FDA-Public Use
  Company Number: None

PATIENT
  Age: 63 Year
  Sex: Male
  Weight: 159.2 kg

DRUGS (1)
  1. CIPROFLOXACIN HCL [Suspect]
     Indication: CHRONIC OBSTRUCTIVE PULMONARY DISEASE
     Dosage: 250 MG BID PO
     Route: 048
     Dates: start: 20081126, end: 20081204

REACTIONS (1)
  - TENDON RUPTURE [None]
